FAERS Safety Report 9332864 (Version 1)
Quarter: 2013Q2

REPORT INFORMATION
  Report Type: Spontaneous
  Country: US (occurrence: US)
  Receive Date: 20130606
  Receipt Date: 20130606
  Transmission Date: 20140414
  Serious: No
  Sender: FDA-Public Use
  Company Number: US-BAYER-2013-068595

PATIENT
  Age: 84 Year
  Sex: Female
  Weight: 73 kg

DRUGS (5)
  1. ALEVE CAPLET [Suspect]
     Indication: ARTHRITIS
     Dosage: 1 DF, QD WITH FOOD
     Route: 048
     Dates: start: 201303
  2. NORVASC [Concomitant]
  3. OCUVITE LUTEIN [Concomitant]
  4. DIOVAN [Concomitant]
  5. BAYER ASPIRIN REGIMEN ADULT LOW STRENGTH [Concomitant]

REACTIONS (1)
  - Incorrect drug administration duration [Not Recovered/Not Resolved]
